FAERS Safety Report 24336777 (Version 2)
Quarter: 2024Q4

REPORT INFORMATION
  Report Type: Spontaneous
  Country: CN (occurrence: CN)
  Receive Date: 20240919
  Receipt Date: 20241108
  Transmission Date: 20250115
  Serious: Yes (Hospitalization, Other)
  Sender: GLAXOSMITHKLINE
  Company Number: CN-GLAXOSMITHKLINE-CN2024APC113936

PATIENT

DRUGS (3)
  1. TRELEGY ELLIPTA [Suspect]
     Active Substance: FLUTICASONE FUROATE\UMECLIDINIUM BROMIDE\VILANTEROL TRIFENATATE
     Indication: Emphysema
     Dosage: 1 DF, QD (100?G/62.5/25?G 30 DOSES)
     Route: 055
     Dates: start: 202409
  2. SYMBICORT [Concomitant]
     Active Substance: BUDESONIDE\FORMOTEROL FUMARATE DIHYDRATE
     Indication: Emphysema
     Dosage: UNK
  3. MONTELUKAST SODIUM [Concomitant]
     Active Substance: MONTELUKAST SODIUM
     Indication: Emphysema
     Dosage: UNK

REACTIONS (11)
  - Abdominal discomfort [Unknown]
  - Choking [Not Recovered/Not Resolved]
  - Cough [Unknown]
  - Dysphonia [Not Recovered/Not Resolved]
  - Paraesthesia oral [Unknown]
  - Dry eye [Unknown]
  - Discomfort [Unknown]
  - Intentional product misuse [Unknown]
  - Extra dose administered [Unknown]
  - Product use in unapproved indication [Unknown]
  - Product complaint [Unknown]

NARRATIVE: CASE EVENT DATE: 20240913
